FAERS Safety Report 5971455-6 (Version None)
Quarter: 2008Q4

REPORT INFORMATION
  Report Type: 
  Country: None (occurrence: None)
  Receive Date: 20081201
  Receipt Date: 20081118
  Transmission Date: 20090506
  Serious: Yes (Other)
  Sender: FDA-Public Use
  Company Number: US-JNJFOC-20081006101

PATIENT
  Sex: Female
  Weight: 83.9 kg

DRUGS (4)
  1. REMICADE [Suspect]
     Route: 042
  2. REMICADE [Suspect]
     Route: 042
  3. REMICADE [Suspect]
     Route: 042
  4. REMICADE [Suspect]
     Indication: COLITIS ULCERATIVE
     Dosage: 7 INFUSIONS ON UNSPECIFIED DATES (UNSPECIFIED DOSE)
     Route: 042

REACTIONS (1)
  - FACIAL PALSY [None]
